FAERS Safety Report 4976772-4 (Version None)
Quarter: 2006Q2

REPORT INFORMATION
  Report Type: 
  Country: None (occurrence: None)
  Receive Date: 20060419
  Receipt Date: 20060331
  Transmission Date: 20061013
  Serious: Yes (Hospitalization)
  Sender: FDA-Public Use
  Company Number: FR-GLAXOSMITHKLINE-B0418996A

PATIENT
  Age: 49 Year
  Sex: Male

DRUGS (5)
  1. AVANDIA [Suspect]
     Indication: DIABETES MELLITUS NON-INSULIN-DEPENDENT
     Dosage: 4MG PER DAY
     Route: 048
  2. IMMUNE GLOBULIN INTRAVENOUS (HUMAN) [Suspect]
     Indication: DEMYELINATING POLYNEUROPATHY
     Dosage: 30MG PER DAY
     Route: 065
     Dates: start: 20051207, end: 20051215
  3. ACETAMINOPHEN [Suspect]
     Dosage: 3MG PER DAY
     Route: 065
  4. IMOVANE [Suspect]
     Route: 065
  5. AMARYL [Suspect]
     Dosage: 4MG PER DAY
     Route: 065

REACTIONS (2)
  - HEADACHE [None]
  - PYREXIA [None]
